FAERS Safety Report 10312610 (Version 3)
Quarter: 2014Q4

REPORT INFORMATION
  Report Type: Spontaneous
  Country: IN (occurrence: IN)
  Receive Date: 20140718
  Receipt Date: 20141119
  Transmission Date: 20150528
  Serious: Yes (Other)
  Sender: FDA-Public Use
  Company Number: IN-RANBAXY-2014RR-83448

PATIENT

DRUGS (4)
  1. ETOPOSIDE. [Suspect]
     Active Substance: ETOPOSIDE
     Indication: BRAIN NEOPLASM
     Dosage: LOW DOSE IN 12-WEEKLY CYCLES
     Route: 048
  2. VALPROIC ACID. [Suspect]
     Active Substance: VALPROIC ACID
     Indication: BRAIN NEOPLASM
     Dosage: LOW DOSE IN 12-WEEKLY CYCLES
     Route: 048
  3. TEMOZOLOMIDE. [Suspect]
     Active Substance: TEMOZOLOMIDE
     Indication: BRAIN NEOPLASM
     Dosage: LOW DOSE IN 12-WEEKLY CYCLES
     Route: 048
  4. ISOTRETINOIN [Suspect]
     Active Substance: ISOTRETINOIN
     Indication: BRAIN NEOPLASM
     Dosage: LOW DOSE IN 12-WEEKLY CYCLES
     Route: 048

REACTIONS (1)
  - Cytopenia [Unknown]
